FAERS Safety Report 8186613-2 (Version None)
Quarter: 2012Q1

REPORT INFORMATION
  Report Type: 
  Country: None (occurrence: None)
  Receive Date: 20120306
  Receipt Date: 20120227
  Transmission Date: 20120608
  Serious: Yes (Hospitalization)
  Sender: FDA-Public Use
  Company Number: US-BAYER-2011-021556

PATIENT
  Age: 43 Year
  Sex: Female
  Weight: 79.819 kg

DRUGS (7)
  1. YAZ [Suspect]
     Indication: PREMENSTRUAL SYNDROME
     Dosage: UNK
     Dates: start: 20060101, end: 20080101
  2. PLAVIX [Concomitant]
  3. PROVENTIL [Concomitant]
     Dosage: UNK
     Dates: start: 20060101, end: 20060101
  4. ALBUTEROL [Concomitant]
     Dosage: UNK
     Dates: start: 20060101, end: 20080101
  5. ZOCOR [Concomitant]
  6. DIETHYLPROPION [Concomitant]
     Dosage: 25 MG, UNK
  7. ASPIRIN [Concomitant]

REACTIONS (4)
  - INJURY [None]
  - ANXIETY [None]
  - PAIN [None]
  - MYOCARDIAL INFARCTION [None]
